FAERS Safety Report 18343264 (Version 1)
Quarter: 2020Q4

REPORT INFORMATION
  Report Type: Spontaneous
  Country: US (occurrence: US)
  Receive Date: 20201003
  Receipt Date: 20201003
  Transmission Date: 20210113
  Serious: No
  Sender: FDA-Public Use
  Company Number: None

PATIENT
  Age: 77 Year
  Sex: Female
  Weight: 60.75 kg

DRUGS (2)
  1. WP THYROID [Suspect]
     Active Substance: THYROID, PORCINE
  2. NATURE-THROID [Suspect]
     Active Substance: THYROID, PORCINE
     Indication: THYROID HORMONE REPLACEMENT THERAPY
     Route: 048

REACTIONS (3)
  - Alopecia [None]
  - Fatigue [None]
  - Product colour issue [None]
